FAERS Safety Report 24851741 (Version 1)
Quarter: 2025Q1

REPORT INFORMATION
  Report Type: Spontaneous
  Country: BE (occurrence: BE)
  Receive Date: 20250116
  Receipt Date: 20250116
  Transmission Date: 20250409
  Serious: Yes (Death)
  Sender: ASTELLAS
  Company Number: BE-ASTELLAS-2024-AER-025943

PATIENT
  Age: 27 Year
  Sex: Male

DRUGS (1)
  1. PADCEV [Suspect]
     Active Substance: ENFORTUMAB VEDOTIN-EJFV
     Indication: Non-renal cell carcinoma of kidney
     Route: 065
     Dates: start: 20241217

REACTIONS (2)
  - Pericarditis [Fatal]
  - Off label use [Unknown]

NARRATIVE: CASE EVENT DATE: 20241217
